FAERS Safety Report 4844202-9 (Version None)
Quarter: 2005Q4

REPORT INFORMATION
  Report Type: 
  Country: None (occurrence: None)
  Receive Date: 20051202
  Receipt Date: 20051101
  Transmission Date: 20060501
  Serious: Yes (Hospitalization, Other)
  Sender: FDA-Public Use
  Company Number: US-GLAXOSMITHKLINE-A0580492A

PATIENT
  Age: 7 Week
  Sex: Female
  Weight: 3.4 kg

DRUGS (2)
  1. RETROVIR [Suspect]
     Indication: ANTIVIRAL PROPHYLAXIS
     Dosage: .53CC FOUR TIMES PER DAY
     Route: 048
     Dates: start: 20050101, end: 20050101
  2. NO CONCURRENT MEDICATION [Concomitant]

REACTIONS (11)
  - ABDOMINAL PAIN [None]
  - CHOLANGITIS ACUTE [None]
  - CHOLELITHIASIS [None]
  - CHOLESTASIS [None]
  - DIARRHOEA [None]
  - GROWTH RETARDATION [None]
  - HEPATIC ENZYME INCREASED [None]
  - INFLAMMATION [None]
  - IRRITABILITY [None]
  - JAUNDICE [None]
  - PYREXIA [None]
